FAERS Safety Report 5283183-3 (Version None)
Quarter: 2007Q2

REPORT INFORMATION
  Report Type: 
  Country: None (occurrence: None)
  Receive Date: 20070402
  Receipt Date: 20070328
  Transmission Date: 20071010
  Serious: Yes (Other)
  Sender: FDA-Public Use
  Company Number: US-GLAXOSMITHKLINE-A0645015A

PATIENT
  Age: 33 Year
  Sex: Female

DRUGS (2)
  1. PAROXETINE HCL [Suspect]
     Dosage: 30MG PER DAY
     Route: 048
     Dates: end: 20070307
  2. NO CONCURRENT MEDICATION [Concomitant]

REACTIONS (6)
  - ANXIETY [None]
  - DRUG DEPENDENCE [None]
  - HEADACHE [None]
  - HYPERHIDROSIS [None]
  - MENSTRUATION IRREGULAR [None]
  - NAUSEA [None]
